FAERS Safety Report 20336378 (Version 1)
Quarter: 2022Q1

REPORT INFORMATION
  Report Type: Spontaneous
  Country: US (occurrence: US)
  Receive Date: 20220114
  Receipt Date: 20220114
  Transmission Date: 20220423
  Serious: Yes (Death, Hospitalization)
  Sender: FDA-Public Use
  Company Number: US-Adamas_Pharmaceuticals-USA-POI1235202200003

PATIENT
  Age: 73 Year
  Sex: Female

DRUGS (4)
  1. OSMOLEX ER [Suspect]
     Active Substance: AMANTADINE
     Indication: Parkinson^s disease
     Dates: start: 20210608
  2. OSMOLEX ER [Suspect]
     Active Substance: AMANTADINE
     Dates: start: 20210421, end: 20210511
  3. OSMOLEX ER [Suspect]
     Active Substance: AMANTADINE
     Dates: start: 20210216, end: 20210413
  4. OSMOLEX ER [Suspect]
     Active Substance: AMANTADINE
     Dates: start: 202101, end: 20210215

REACTIONS (1)
  - Acute respiratory distress syndrome [Fatal]

NARRATIVE: CASE EVENT DATE: 20220108
